FAERS Safety Report 13881403 (Version 1)
Quarter: 2017Q3

REPORT INFORMATION
  Report Type: Spontaneous
  Country: US (occurrence: US)
  Receive Date: 20170818
  Receipt Date: 20170818
  Transmission Date: 20171127
  Serious: No
  Sender: FDA-Public Use
  Company Number: US-PFIZER INC-2017358101

PATIENT
  Age: 69 Year
  Sex: Female
  Weight: 54 kg

DRUGS (6)
  1. VITAMIN B12 [Suspect]
     Active Substance: CYANOCOBALAMIN
     Dosage: 500 MG; SUBLINGUAL
     Route: 060
  2. CALCIUM+VITAMIN D3 [Suspect]
     Active Substance: CALCIUM\CHOLECALCIFEROL
     Dosage: 12 MG+VITAMIN D3
  3. VITAMIN B6 [Suspect]
     Active Substance: PYRIDOXINE HYDROCHLORIDE
     Dosage: 100 MG, UNK
  4. IRON [Suspect]
     Active Substance: IRON
     Dosage: TABLET
  5. CHANTIX [Suspect]
     Active Substance: VARENICLINE TARTRATE
     Indication: SMOKING CESSATION THERAPY
     Dosage: 1 MG, 2X/DAY
     Route: 048
     Dates: start: 20170805
  6. BABY ASPIRIN [Concomitant]
     Active Substance: ASPIRIN

REACTIONS (5)
  - Vomiting [Unknown]
  - Nausea [Unknown]
  - Feeling abnormal [Unknown]
  - Asthenia [Unknown]
  - Malaise [Unknown]

NARRATIVE: CASE EVENT DATE: 20170813
